FAERS Safety Report 23842496 (Version 2)
Quarter: 2024Q2

REPORT INFORMATION
  Report Type: Report from Study
  Country: PY (occurrence: PY)
  Receive Date: 20240510
  Receipt Date: 20240624
  Transmission Date: 20240715
  Serious: Yes (Other)
  Sender: FDA-Public Use
  Company Number: PY-ROCHE-3559633

PATIENT
  Age: 1 Year
  Sex: Male
  Weight: 9.15 kg

DRUGS (1)
  1. EVRYSDI [Suspect]
     Active Substance: RISDIPLAM
     Indication: Spinal muscular atrophy
     Dosage: ON 24/APR/2024, RECEIVED MOST RECENT DOSE OF EVRYSDI PRIOR TO THE EVENT
     Route: 050
     Dates: start: 20230802

REACTIONS (3)
  - Seizure [Recovered/Resolved]
  - Acquired plagiocephaly [Unknown]
  - Magnetic resonance imaging head abnormal [Unknown]

NARRATIVE: CASE EVENT DATE: 20240425
